FAERS Safety Report 7732434-1 (Version None)
Quarter: 2011Q3

REPORT INFORMATION
  Report Type: 
  Country: None (occurrence: None)
  Receive Date: 20110906
  Receipt Date: 20110826
  Transmission Date: 20111222
  Serious: Yes (Hospitalization)
  Sender: FDA-Public Use
  Company Number: US-US-EMD SERONO, INC.-7036100

PATIENT
  Sex: Female

DRUGS (3)
  1. REBIF [Suspect]
     Indication: MULTIPLE SCLEROSIS
     Route: 058
     Dates: start: 20101123, end: 20101201
  2. IBUPROFEN [Suspect]
  3. REBIF [Suspect]
     Route: 058

REACTIONS (3)
  - STAPHYLOCOCCAL INFECTION [None]
  - GASTRIC ULCER HAEMORRHAGE [None]
  - LOSS OF CONTROL OF LEGS [None]
